FAERS Safety Report 18512905 (Version 2)
Quarter: 2021Q3

REPORT INFORMATION
  Report Type: Report from Study
  Country: ID (occurrence: ID)
  Receive Date: 20201117
  Receipt Date: 20210715
  Transmission Date: 20211014
  Serious: Yes (Other)
  Sender: FDA-Public Use
  Company Number: ID-SEATTLE GENETICS-2020SGN05089

PATIENT
  Age: 51 Year
  Sex: Male

DRUGS (1)
  1. BRENTUXIMAB VEDOTIN [Suspect]
     Active Substance: BRENTUXIMAB VEDOTIN
     Indication: CUTANEOUS T-CELL LYMPHOMA
     Dosage: 100 MILLIGRAM
     Route: 065
     Dates: start: 20201104

REACTIONS (7)
  - Asthenia [Unknown]
  - Insomnia [Unknown]
  - Decreased appetite [Unknown]
  - Headache [Unknown]
  - Skin injury [Unknown]
  - Skin discharge [Unknown]
  - COVID-19 [Unknown]

NARRATIVE: CASE EVENT DATE: 20210706
